FAERS Safety Report 23759712 (Version 1)
Quarter: 2024Q2

REPORT INFORMATION
  Report Type: Spontaneous
  Country: CA (occurrence: CA)
  Receive Date: 20240419
  Receipt Date: 20240419
  Transmission Date: 20240716
  Serious: Yes (Other)
  Sender: FDA-Public Use
  Company Number: CA-AUROBINDO-AUR-APL-2024-017855

PATIENT
  Age: 58 Year
  Sex: Female

DRUGS (2)
  1. AMOXICILLIN [Suspect]
     Active Substance: AMOXICILLIN
     Indication: Breast cancer metastatic
     Dosage: UNK
     Route: 065
  2. CLINDAMYCIN [Suspect]
     Active Substance: CLINDAMYCIN
     Indication: Breast cancer metastatic
     Dosage: UNK
     Route: 065

REACTIONS (4)
  - Anaphylactic reaction [Unknown]
  - Drug hypersensitivity [Unknown]
  - Rash [Unknown]
  - Product use in unapproved indication [Unknown]
